FAERS Safety Report 4320673-1 (Version None)
Quarter: 2004Q1

REPORT INFORMATION
  Report Type: 
  Country: None (occurrence: None)
  Receive Date: 20040318
  Receipt Date: 20040227
  Transmission Date: 20041129
  Serious: Yes (Hospitalization)
  Sender: FDA-Public Use
  Company Number: F01200300661

PATIENT
  Age: 66 Year
  Sex: Male

DRUGS (2)
  1. (OXALIPLATIN) - SOLUTION - 260 MG [Suspect]
     Indication: NON-SMALL CELL LUNG CANCER
     Dosage: 260 MG Q3W, INTRAVENOUS NOS 2 HOURS -TIME OF ONSET
     Route: 042
     Dates: start: 20030408, end: 20030408
  2. (GEMCITABINE) - SOLUTION - 250 MG [Suspect]
     Dosage: 2500 MG IV 30 MINUTES INFUSION ON DAY 1 AND 8 Q3W, INTRAVENOUS NOS
     Route: 042
     Dates: start: 20030416, end: 20030416

REACTIONS (10)
  - ATRIAL FLUTTER [None]
  - CARDIAC FAILURE [None]
  - CARDIOTOXICITY [None]
  - CHEST PAIN [None]
  - GENERAL PHYSICAL HEALTH DETERIORATION [None]
  - HAEMOGLOBIN DECREASED [None]
  - LUNG DISORDER [None]
  - MALAISE [None]
  - OXYGEN SATURATION DECREASED [None]
  - PULMONARY OEDEMA [None]
